FAERS Safety Report 6340659-5 (Version None)
Quarter: 2009Q3

REPORT INFORMATION
  Report Type: 
  Country: None (occurrence: None)
  Receive Date: 20090904
  Receipt Date: 20090828
  Transmission Date: 20100115
  Serious: Yes (Life-Threatening, Hospitalization, Disabling)
  Sender: FDA-Public Use
  Company Number: US-BAYER-200924331NA

PATIENT
  Age: 77 Year
  Sex: Female
  Weight: 74 kg

DRUGS (26)
  1. SORAFENIB [Suspect]
     Indication: RENAL CELL CARCINOMA
     Dosage: TOTAL DAILY DOSE: 400 MG  UNIT DOSE: 200 MG
     Route: 048
     Dates: start: 20090626, end: 20090805
  2. SORAFENIB [Suspect]
     Dosage: TOTAL DAILY DOSE: 400 MG  UNIT DOSE: 200 MG
     Route: 048
     Dates: start: 20090617, end: 20090617
  3. SORAFENIB [Suspect]
     Dosage: TOTAL DAILY DOSE: 400 MG  UNIT DOSE: 200 MG
     Route: 048
     Dates: start: 20090614, end: 20090614
  4. SORAFENIB [Suspect]
     Dosage: TOTAL DAILY DOSE: 800 MG  UNIT DOSE: 200 MG
     Route: 048
     Dates: start: 20090615, end: 20090616
  5. SORAFENIB [Suspect]
     Dosage: TOTAL DAILY DOSE: 400 MG  UNIT DOSE: 200 MG
     Route: 048
     Dates: start: 20090521, end: 20090521
  6. SORAFENIB [Suspect]
     Dosage: TOTAL DAILY DOSE: 800 MG  UNIT DOSE: 200 MG
     Route: 048
     Dates: start: 20090522, end: 20090613
  7. DILTIAZEM [Concomitant]
     Indication: HYPERTENSION
     Dosage: TOTAL DAILY DOSE: 180 MG
     Route: 048
     Dates: start: 20090614
  8. DILTIAZEM [Concomitant]
     Dosage: TOTAL DAILY DOSE: 360 MG
     Route: 048
     Dates: start: 20090414
  9. COUMADIN [Concomitant]
     Indication: ATRIAL FIBRILLATION
     Route: 048
     Dates: start: 20090805
  10. COUMADIN [Concomitant]
     Dosage: TOTAL DAILY DOSE: 3 MG
     Route: 048
     Dates: start: 20090414, end: 20090725
  11. COUMADIN [Concomitant]
     Dosage: 1 AS DIRECTED
  12. MICARDIS [Concomitant]
     Indication: HYPERTENSION
     Dosage: TOTAL DAILY DOSE: 40 MG
     Route: 048
     Dates: start: 20040112
  13. MAXZIDE [Concomitant]
     Indication: HYPERTENSION
     Dosage: TOTAL DAILY DOSE: 1 DF
     Route: 048
     Dates: start: 20020607
  14. SYNTHROID [Concomitant]
     Indication: HYPOTHYROIDISM
     Dosage: TOTAL DAILY DOSE: 0.05 MG
     Route: 048
     Dates: start: 19980213
  15. NITROGLYCERIN [Concomitant]
     Indication: ANGINA PECTORIS
     Route: 060
     Dates: start: 20080114
  16. POTASSIUM CHLORIDE [Concomitant]
     Indication: HYPOKALAEMIA
     Dosage: TOTAL DAILY DOSE: 20 MEQ
     Route: 048
     Dates: start: 20090625
  17. MAGNESIUM OXIDE [Concomitant]
     Indication: HYPOMAGNESAEMIA
     Dosage: TOTAL DAILY DOSE: 800 MG
     Route: 048
     Dates: start: 20090625
  18. PAXIL [Concomitant]
     Indication: DEPRESSION
     Dosage: TOTAL DAILY DOSE: 20 MG
     Route: 048
     Dates: start: 19990604
  19. FOLBIC [Concomitant]
     Dosage: TOTAL DAILY DOSE: 1 DF
     Route: 048
     Dates: start: 19990427
  20. DIGOXIN [Concomitant]
     Indication: ATRIAL FIBRILLATION
     Route: 048
     Dates: start: 20090611
  21. PHENERGAN [Concomitant]
  22. OMEPRAZOLE [Concomitant]
     Indication: GASTROOESOPHAGEAL REFLUX DISEASE
     Dosage: TOTAL DAILY DOSE: 40 MG
     Route: 048
     Dates: start: 19980213
  23. SENOKOT [Concomitant]
     Indication: CONSTIPATION
     Route: 048
     Dates: start: 20090804
  24. AMBIEN [Concomitant]
     Indication: INSOMNIA
     Route: 048
     Dates: start: 20090804
  25. LASIX [Concomitant]
     Indication: OEDEMA PERIPHERAL
     Route: 048
     Dates: start: 20040715
  26. CALCIUM CARBONATE [Concomitant]
     Indication: FRACTURE
     Dosage: TOTAL DAILY DOSE: 2 DF
     Route: 048
     Dates: start: 20010122

REACTIONS (7)
  - ABDOMINAL PAIN [None]
  - BACK PAIN [None]
  - DECREASED APPETITE [None]
  - DIARRHOEA [None]
  - FAECAL INCONTINENCE [None]
  - MUSCULOSKELETAL PAIN [None]
  - NAUSEA [None]
